FAERS Safety Report 9235070 (Version 1)
Quarter: 2013Q2

REPORT INFORMATION
  Report Type: Spontaneous
  Country: US (occurrence: US)
  Receive Date: 20130416
  Receipt Date: 20130416
  Transmission Date: 20140414
  Serious: Yes (Hospitalization)
  Sender: FDA-Public Use
  Company Number: US-GILEAD-2013-0073392

PATIENT
  Age: 81 Year
  Sex: Female

DRUGS (12)
  1. RANOLAZINE [Suspect]
     Indication: ANGINA PECTORIS
     Dosage: 500 MG, BID
     Route: 048
  2. RANOLAZINE [Suspect]
     Dosage: 1000 UNK, UNK
     Route: 048
  3. ASPIRIN [Concomitant]
     Dosage: 81 MG, QD
  4. ASPIRIN [Concomitant]
     Dosage: 325 MG, QD
  5. METOPROLOL TARTRATE [Concomitant]
  6. CLOPIDOGREL [Concomitant]
  7. ROSUVASTATIN [Concomitant]
     Dosage: 5 MG, QD
  8. ROSUVASTATIN [Concomitant]
     Dosage: 10 MG, QD
  9. NITROGLYCERIN [Concomitant]
  10. CITALOPRAM [Concomitant]
  11. OMEPRAZOLE [Concomitant]
  12. ALLOPURINOL [Concomitant]

REACTIONS (6)
  - Dysarthria [Recovered/Resolved]
  - Cerebellar syndrome [Recovered/Resolved]
  - Aphasia [Recovered/Resolved]
  - Tremor [Recovered/Resolved]
  - Hallucination [Recovered/Resolved]
  - Confusional state [Recovered/Resolved]
